FAERS Safety Report 5927444-0 (Version None)
Quarter: 2008Q4

REPORT INFORMATION
  Report Type: 
  Country: None (occurrence: None)
  Receive Date: 20081022
  Receipt Date: 20081022
  Transmission Date: 20090506
  Serious: No
  Sender: FDA-Public Use
  Company Number: None

PATIENT
  Age: 48 Year
  Sex: Female
  Weight: 55.7924 kg

DRUGS (3)
  1. OVCON-35 [Suspect]
     Indication: DYSMENORRHOEA
     Dosage: 0.4-0.035 DAILY P.O.
     Route: 048
     Dates: start: 20081002
  2. OVCON-35 [Suspect]
     Indication: MENSTRUATION IRREGULAR
     Dosage: 0.4-0.035 DAILY P.O.
     Route: 048
     Dates: start: 20081002
  3. OVCON-35 [Suspect]
     Indication: MOOD SWINGS
     Dosage: 0.4-0.035 DAILY P.O.
     Route: 048
     Dates: start: 20081002

REACTIONS (2)
  - CONDITION AGGRAVATED [None]
  - THERAPEUTIC RESPONSE UNEXPECTED WITH DRUG SUBSTITUTION [None]
